FAERS Safety Report 8178226-3 (Version None)
Quarter: 2012Q1

REPORT INFORMATION
  Report Type: 
  Country: None (occurrence: None)
  Receive Date: 20120301
  Receipt Date: 20120222
  Transmission Date: 20120608
  Serious: Yes (Other)
  Sender: FDA-Public Use
  Company Number: PHEH2012US004600

PATIENT
  Sex: Male
  Weight: 113.38 kg

DRUGS (7)
  1. SERTRALINE HYDROCHLORIDE [Concomitant]
     Indication: EPILEPSY
     Dosage: 200 MG, DAILY
  2. CARBAMAZEPINE [Suspect]
     Dosage: UNK UKN, UNK
     Dates: start: 20120101
  3. LYRICA [Interacting]
     Indication: EPILEPSY
     Dosage: 80 MG, DAILY
  4. LAMOTRIGINE [Concomitant]
     Indication: EPILEPSY
     Dosage: 400 MG IN THE MORNING AND 150 MG IN EVENING
  5. CETIRIZINE [Concomitant]
     Dosage: 10 MG, DAILY
  6. CLORAZEPATE DIPOTASSIUM [Concomitant]
     Dosage: 15 MG,DAILY
  7. VIMPAT [Concomitant]
     Indication: EPILEPSY
     Dosage: 100 MG IN THE MORNING AND 200 MG IN THE EVENING

REACTIONS (8)
  - FALL [None]
  - MEMORY IMPAIRMENT [None]
  - DIZZINESS [None]
  - WEIGHT ABNORMAL [None]
  - DRUG INTERACTION [None]
  - DYSSTASIA [None]
  - VOMITING [None]
  - ASTHENIA [None]
